FAERS Safety Report 5460501-4 (Version None)
Quarter: 2007Q3

REPORT INFORMATION
  Report Type: 
  Country: None (occurrence: None)
  Receive Date: 20070919
  Receipt Date: 20070913
  Transmission Date: 20080115
  Serious: Yes (Hospitalization, Other)
  Sender: FDA-Public Use
  Company Number: US-PFIZER INC-2007076358

PATIENT
  Sex: Female

DRUGS (2)
  1. BEXTRA [Suspect]
     Indication: ARTHRITIS
     Dates: start: 20030515, end: 20030519
  2. BEXTRA [Suspect]
     Indication: BACK PAIN

REACTIONS (2)
  - HYPERSENSITIVITY [None]
  - RASH [None]
